FAERS Safety Report 7227067-X (Version None)
Quarter: 2011Q1

REPORT INFORMATION
  Report Type: 
  Country: None (occurrence: None)
  Receive Date: 20110114
  Receipt Date: 20110106
  Transmission Date: 20110831
  Serious: Yes (Hospitalization, Other)
  Sender: FDA-Public Use
  Company Number: US-ROCHE-731098

PATIENT
  Sex: Male
  Weight: 75.3 kg

DRUGS (1)
  1. ACCUTANE [Suspect]
     Indication: ROSACEA
     Dosage: FROM 29 JUN 1999, FREQUENCY: 40 MG QD, FROM 06 AUG 1999, FREQUENCY: 40 MG BID
     Route: 065
     Dates: start: 19990629, end: 20000101

REACTIONS (12)
  - GASTROINTESTINAL INJURY [None]
  - GASTROINTESTINAL HAEMORRHAGE [None]
  - OSTEOARTHRITIS [None]
  - VARICELLA VIRUS TEST POSITIVE [None]
  - ILEITIS [None]
  - EPISTAXIS [None]
  - CROHN'S DISEASE [None]
  - INFLAMMATORY BOWEL DISEASE [None]
  - APHTHOUS STOMATITIS [None]
  - BLOOD TRIGLYCERIDES INCREASED [None]
  - BASAL CELL CARCINOMA [None]
  - TENDONITIS [None]
